FAERS Safety Report 10056642 (Version 3)
Quarter: 2014Q2

REPORT INFORMATION
  Report Type: Spontaneous
  Country: AU (occurrence: AU)
  Receive Date: 20140403
  Receipt Date: 20140514
  Transmission Date: 20141212
  Serious: Yes (Other)
  Sender: FDA-Public Use
  Company Number: AU-PFIZER INC-2014092949

PATIENT
  Age: 76 Year
  Sex: Male
  Weight: 100 kg

DRUGS (8)
  1. PRISTIQ [Suspect]
     Indication: MAJOR DEPRESSION
     Dosage: 300 MG, DAILY
  2. PRISTIQ [Interacting]
     Dosage: UNK
  3. PRISTIQ [Interacting]
     Dosage: 100 MG, 3X/DAY
     Route: 048
  4. LIPITOR [Interacting]
     Dosage: 20 MG, 1X/DAY
     Route: 048
     Dates: end: 201403
  5. DITROPAN [Interacting]
     Indication: URINARY INCONTINENCE
     Dosage: 5 MG, 2X/DAY
     Route: 048
     Dates: end: 201403
  6. MINIPRESS [Concomitant]
  7. PARIET [Concomitant]
     Dosage: 20 MG, UNK
  8. PANADOL OSTEO [Concomitant]

REACTIONS (4)
  - Serotonin syndrome [Recovering/Resolving]
  - Amnesia [Recovering/Resolving]
  - Confusional state [Recovering/Resolving]
  - Drug interaction [Recovering/Resolving]
